FAERS Safety Report 23552138 (Version 1)
Quarter: 2024Q1

REPORT INFORMATION
  Report Type: Spontaneous
  Country: FR (occurrence: FR)
  Receive Date: 20240222
  Receipt Date: 20240222
  Transmission Date: 20240409
  Serious: Yes (Life-Threatening, Other)
  Sender: FDA-Public Use
  Company Number: FR-AFSSAPS-BX2024000239

PATIENT
  Age: 74 Year
  Sex: Female
  Weight: 51 kg

DRUGS (4)
  1. MIRTAZAPINE [Interacting]
     Active Substance: MIRTAZAPINE
     Indication: Depression
     Dosage: 30 MILLIGRAM
     Route: 048
     Dates: start: 20240122
  2. SCOPOLAMINE [Interacting]
     Active Substance: SCOPOLAMINE
     Indication: Salivary hypersecretion
     Dosage: 0.5 MILLIGRAM, AS NECESSARY
     Route: 058
     Dates: start: 20240131, end: 20240201
  3. TRIMEPRAZINE [Interacting]
     Active Substance: TRIMEPRAZINE
     Indication: Paranoia
     Dosage: 25 MILLIGRAM
     Route: 048
  4. ABILIFY [Concomitant]
     Active Substance: ARIPIPRAZOLE
     Indication: Product used for unknown indication
     Dosage: UNK
     Route: 065

REACTIONS (1)
  - Anticholinergic syndrome [Recovered/Resolved]

NARRATIVE: CASE EVENT DATE: 20240131
